FAERS Safety Report 5515420-1 (Version None)
Quarter: 2007Q4

REPORT INFORMATION
  Report Type: 
  Country: None (occurrence: None)
  Receive Date: 20071113
  Receipt Date: 20070212
  Transmission Date: 20080405
  Serious: No
  Sender: FDA-Public Use
  Company Number: A0639234A

PATIENT
  Age: 70 Year
  Sex: Male

DRUGS (10)
  1. COREG [Suspect]
     Dosage: 25MG TWICE PER DAY
     Route: 048
     Dates: start: 19980101
  2. PRAVACHOL [Concomitant]
  3. CARDURA [Concomitant]
  4. COUMADIN [Concomitant]
  5. DIGITEK [Concomitant]
  6. COZAAR [Concomitant]
  7. FUROSEMIDE [Concomitant]
  8. DIPYRIDAMOLE [Concomitant]
  9. AVODART [Concomitant]
  10. NITROGLYCERIN [Concomitant]

REACTIONS (3)
  - HYPERTENSION [None]
  - JOINT SWELLING [None]
  - OEDEMA PERIPHERAL [None]
